FAERS Safety Report 6299533-5 (Version None)
Quarter: 2009Q3

REPORT INFORMATION
  Report Type: 
  Country: None (occurrence: None)
  Receive Date: 20090803
  Receipt Date: 20090715
  Transmission Date: 20100115
  Serious: Yes (Death, Hospitalization)
  Sender: FDA-Public Use
  Company Number: 2009AL001995

PATIENT
  Age: 65 Year
  Sex: Female
  Weight: 75.7507 kg

DRUGS (19)
  1. DIGOXIN [Suspect]
     Dosage: PO
     Route: 048
     Dates: start: 20061003
  2. INSULIN [Concomitant]
  3. SPIRONOLACTONE [Concomitant]
  4. TICLOPIDINE HCL [Concomitant]
  5. TIOTROPIUM [Concomitant]
  6. ASPIRIN [Concomitant]
  7. FUROSEMIDE [Concomitant]
  8. PREDNISONE [Concomitant]
  9. LOSARTAN [Concomitant]
  10. SALMETEROL [Concomitant]
  11. BUDESONIDE [Concomitant]
  12. ACETAMINOPHEN [Concomitant]
  13. METOPROLOL [Concomitant]
  14. ACETYLCYSTEINE [Concomitant]
  15. ALPRAZOLAM [Concomitant]
  16. FAMOTIDINE [Concomitant]
  17. CHOLESTYRAMINE [Concomitant]
  18. DILTIAZEM [Concomitant]
  19. LACTOBACILLUS [Concomitant]

REACTIONS (19)
  - ABDOMINAL PAIN [None]
  - ARRHYTHMIA [None]
  - BRAIN NATRIURETIC PEPTIDE INCREASED [None]
  - CARDIOACTIVE DRUG LEVEL INCREASED [None]
  - CHILLS [None]
  - CLOSTRIDIUM COLITIS [None]
  - COUGH [None]
  - DIARRHOEA [None]
  - DYSPNOEA [None]
  - ECONOMIC PROBLEM [None]
  - GAIT DISTURBANCE [None]
  - HEART RATE INCREASED [None]
  - HYPERHIDROSIS [None]
  - ILL-DEFINED DISORDER [None]
  - INJURY [None]
  - MUSCLE SPASMS [None]
  - MYOCARDIAL INFARCTION [None]
  - NAUSEA [None]
  - VOMITING [None]
